FAERS Safety Report 19820703 (Version 5)
Quarter: 2021Q4

REPORT INFORMATION
  Report Type: Spontaneous
  Country: US (occurrence: US)
  Receive Date: 20210913
  Receipt Date: 20211029
  Transmission Date: 20220303
  Serious: No
  Sender: FDA-Public Use
  Company Number: US-JNJFOC-20210903887

PATIENT
  Age: 76 Year
  Sex: Female
  Weight: 65.83 kg

DRUGS (1)
  1. SIMPONI [Suspect]
     Active Substance: GOLIMUMAB
     Indication: Rheumatoid arthritis
     Dosage: STRENGTH: 50.00 MG /0.50 ML
     Route: 058
     Dates: start: 20210801

REACTIONS (5)
  - Accidental exposure to product [Unknown]
  - Product dose omission issue [Not Recovered/Not Resolved]
  - Drug ineffective [Not Recovered/Not Resolved]
  - Adverse event [Unknown]
  - Device leakage [Unknown]

NARRATIVE: CASE EVENT DATE: 20210901
